FAERS Safety Report 12858943 (Version 1)
Quarter: 2016Q4

REPORT INFORMATION
  Report Type: Spontaneous
  Country: US (occurrence: US)
  Receive Date: 20161018
  Receipt Date: 20161018
  Transmission Date: 20170207
  Serious: No
  Sender: FDA-Public Use
  Company Number: US-ACTELION-A-US2016-143730

PATIENT
  Age: 27 Year
  Sex: Female

DRUGS (2)
  1. VELETRI [Suspect]
     Active Substance: EPOPROSTENOL
     Indication: PULMONARY ARTERIAL HYPERTENSION
     Dosage: 9 NG/KG, PER MIN
     Route: 042
     Dates: start: 20160111
  2. SILDENAFIL. [Concomitant]
     Active Substance: SILDENAFIL

REACTIONS (8)
  - Nausea [Unknown]
  - Dizziness [Unknown]
  - Drug dose omission [Unknown]
  - Seasonal allergy [Unknown]
  - Sinus congestion [Unknown]
  - Rhinorrhoea [Unknown]
  - Flushing [Unknown]
  - Device issue [Unknown]
